FAERS Safety Report 9408890 (Version 2)
Quarter: 2013Q3

REPORT INFORMATION
  Report Type: Report from Study
  Country: US (occurrence: US)
  Receive Date: 20130719
  Receipt Date: 20130814
  Transmission Date: 20140515
  Serious: Yes (Hospitalization)
  Sender: FDA-Public Use
  Company Number: US-ROCHE-1219143

PATIENT
  Age: 43 Year
  Sex: Female

DRUGS (2)
  1. PEGASYS [Suspect]
     Indication: CHRONIC HEPATITIS C
     Route: 065
     Dates: start: 20130411
  2. RIBASPHERE [Suspect]
     Indication: CHRONIC HEPATITIS C
     Route: 065
     Dates: start: 20130411

REACTIONS (14)
  - Wheezing [Recovered/Resolved]
  - Cough [Not Recovered/Not Resolved]
  - Abdominal pain [Recovered/Resolved]
  - Pruritus generalised [Recovered/Resolved]
  - Nausea [Unknown]
  - Pain [Unknown]
  - Injection site bruising [Unknown]
  - Epistaxis [Unknown]
  - Platelet count decreased [Unknown]
  - White blood cell count abnormal [Unknown]
  - Dry skin [Recovering/Resolving]
  - Menstrual disorder [Unknown]
  - Respiratory tract congestion [Unknown]
  - White blood cell count decreased [Unknown]
